FAERS Safety Report 8515897-3 (Version None)
Quarter: 2012Q3

REPORT INFORMATION
  Report Type: 
  Country: None (occurrence: None)
  Receive Date: 20120717
  Receipt Date: 20120716
  Transmission Date: 20120928
  Serious: Yes (Other)
  Sender: FDA-Public Use
  Company Number: PHFR2012GB003997

PATIENT
  Sex: Male

DRUGS (3)
  1. CLOZARIL [Suspect]
     Indication: SCHIZOPHRENIA
     Route: 048
     Dates: start: 20120713
  2. OLANZAPINE [Concomitant]
  3. OMEPRAZOLE [Concomitant]

REACTIONS (4)
  - DYSURIA [None]
  - MALAISE [None]
  - RASH GENERALISED [None]
  - BLOOD PRESSURE INCREASED [None]
